FAERS Safety Report 14230817 (Version 1)
Quarter: 2017Q4

REPORT INFORMATION
  Report Type: Spontaneous
  Country: US (occurrence: US)
  Receive Date: 20171128
  Receipt Date: 20171128
  Transmission Date: 20180321
  Serious: No
  Sender: FDA-Public Use
  Company Number: US-JNJFOC-20171016792

PATIENT
  Age: 43 Year
  Sex: Female
  Weight: 56.7 kg

DRUGS (2)
  1. ZYRTEC [Suspect]
     Active Substance: CETIRIZINE HYDROCHLORIDE
     Indication: LACRIMATION INCREASED
     Dosage: A TOTAL OF 24 DISSOLVE TABS
     Route: 048
  2. ZYRTEC [Suspect]
     Active Substance: CETIRIZINE HYDROCHLORIDE
     Indication: SNEEZING
     Dosage: A TOTAL OF 24 DISSOLVE TABS
     Route: 048

REACTIONS (2)
  - Drug ineffective [Unknown]
  - Overdose [Unknown]
